FAERS Safety Report 6910067-4 (Version None)
Quarter: 2010Q3

REPORT INFORMATION
  Report Type: 
  Country: None (occurrence: None)
  Receive Date: 20100806
  Receipt Date: 20100729
  Transmission Date: 20110219
  Serious: Yes (Hospitalization)
  Sender: FDA-Public Use
  Company Number: US-JNJFOC-20100800236

PATIENT
  Sex: Female

DRUGS (1)
  1. FENTANYL CITRATE [Suspect]
     Indication: INTERVERTEBRAL DISC DEGENERATION
     Route: 062

REACTIONS (3)
  - CEREBROVASCULAR ACCIDENT [None]
  - CONCUSSION [None]
  - FALL [None]
